FAERS Safety Report 15938610 (Version 3)
Quarter: 2019Q1

REPORT INFORMATION
  Report Type: Spontaneous
  Country: JP (occurrence: JP)
  Receive Date: 20190208
  Receipt Date: 20190219
  Transmission Date: 20190417
  Serious: Yes (Hospitalization)
  Sender: FDA-Public Use
  Company Number: JP-DSJP-DSJ-2019-101966

PATIENT

DRUGS (13)
  1. EPADEL                             /01682402/ [Concomitant]
     Active Substance: ICOSAPENT ETHYL
     Dosage: 900 MG
     Route: 048
     Dates: start: 20150212
  2. LIXIANA TABLETS 30MG [Suspect]
     Active Substance: EDOXABAN TOSYLATE
     Indication: ATRIAL FIBRILLATION
     Dosage: 30 MG, QD
     Route: 048
     Dates: start: 201504, end: 201504
  3. PLAVIX [Concomitant]
     Active Substance: CLOPIDOGREL BISULFATE
     Dosage: 75 MG
     Route: 048
     Dates: start: 201405, end: 201603
  4. CEROCRAL [Concomitant]
     Active Substance: IFENPRODIL
     Dosage: 60 MG
     Route: 048
     Dates: start: 201405, end: 20180206
  5. TAKECAB [Concomitant]
     Active Substance: VONOPRAZAN FUMURATE
     Dosage: 10 MG
     Route: 048
     Dates: start: 20160301
  6. LIXIANA TABLETS 30MG [Suspect]
     Active Substance: EDOXABAN TOSYLATE
     Dosage: 15 MG, QD
     Route: 048
     Dates: start: 201504, end: 201603
  7. ANPLAG [Concomitant]
     Active Substance: SARPOGRELATE
     Dosage: 100 MG
     Route: 048
     Dates: start: 20160301
  8. LIXIANA TABLETS 30MG [Suspect]
     Active Substance: EDOXABAN TOSYLATE
     Dosage: 30 MG, QD
     Route: 048
     Dates: start: 201804
  9. OLMETEC OD TABLETS 10MG [Concomitant]
     Active Substance: OLMESARTAN MEDOXOMIL
     Dosage: 10 MG
     Route: 048
     Dates: start: 20171205
  10. LIXIANA TABLETS 30MG [Suspect]
     Active Substance: EDOXABAN TOSYLATE
     Dosage: 30 MG, QD
     Route: 048
     Dates: start: 201603, end: 201803
  11. LIXIANA TABLETS 30MG [Suspect]
     Active Substance: EDOXABAN TOSYLATE
     Dosage: 30 MG, QD
     Route: 048
     Dates: start: 201803, end: 201804
  12. DORNER [Concomitant]
     Active Substance: BERAPROST SODIUM
     Dosage: 20 UG
     Route: 048
     Dates: start: 20160301
  13. PLAVIX [Concomitant]
     Active Substance: CLOPIDOGREL BISULFATE
     Dosage: 75 MG
     Route: 048
     Dates: start: 201608

REACTIONS (5)
  - Haematuria [Recovered/Resolved]
  - Urinary retention [Unknown]
  - Haematuria [Recovered/Resolved]
  - Thrombotic cerebral infarction [Recovered/Resolved]
  - Haematuria [Unknown]

NARRATIVE: CASE EVENT DATE: 201504
